FAERS Safety Report 21009508 (Version 1)
Quarter: 2022Q2

REPORT INFORMATION
  Report Type: Spontaneous
  Country: BO (occurrence: None)
  Receive Date: 20220625
  Receipt Date: 20220625
  Transmission Date: 20220721
  Serious: Yes (Disabling)
  Sender: FDA-Public Use
  Company Number: None

PATIENT
  Age: 10 Year
  Sex: Male
  Weight: 32 kg

DRUGS (7)
  1. CLOBETASOL [Suspect]
     Active Substance: CLOBETASOL
     Indication: Eczema
     Dosage: FREQUENCY : EVERY 8 HOURS;?
     Route: 061
     Dates: start: 20120330, end: 20200802
  2. CLOBETASOL [Concomitant]
     Active Substance: CLOBETASOL
  3. BETAMETHASONE [Concomitant]
     Active Substance: BETAMETHASONE
  4. Nutricort [Concomitant]
  5. Tracokimus [Concomitant]
  6. HYDROCORTISONE [Concomitant]
     Active Substance: HYDROCORTISONE
  7. All topical steroid low, medium and high potency [Concomitant]

REACTIONS (3)
  - Topical steroid withdrawal reaction [None]
  - Disability [None]
  - Product use complaint [None]

NARRATIVE: CASE EVENT DATE: 20210802
